FAERS Safety Report 10156818 (Version 1)
Quarter: 2014Q2

REPORT INFORMATION
  Report Type: Spontaneous
  Country: US (occurrence: None)
  Receive Date: 20140506
  Receipt Date: 20140506
  Transmission Date: 20141212
  Serious: Yes (Other)
  Sender: FDA-Public Use
  Company Number: None

PATIENT
  Age: 62 Year
  Sex: Male
  Weight: 110 kg

DRUGS (1)
  1. DABRAFENIB [Suspect]
     Indication: SKIN CANCER
     Route: 048
     Dates: start: 20140409

REACTIONS (4)
  - Fatigue [None]
  - Nausea [None]
  - Neuropathy peripheral [None]
  - Keratoacanthoma [None]
